FAERS Safety Report 8772786 (Version 1)
Quarter: 2012Q4

REPORT INFORMATION
  Report Type: Report from Study
  Country: DE (occurrence: DE)
  Receive Date: 20120907
  Receipt Date: 20120907
  Transmission Date: 20130627
  Serious: Yes (Hospitalization)
  Sender: FDA-Public Use
  Company Number: DE-PFIZER INC-2012212331

PATIENT
  Age: 57 Year
  Sex: Male
  Weight: 80 kg

DRUGS (17)
  1. IRINOTECAN HCL [Suspect]
     Indication: BRAIN NEOPLASM MALIGNANT
     Dosage: 246 mg, cyclic 1 in 2 wk
     Route: 042
     Dates: start: 20111201
  2. BEVACIZUMAB [Suspect]
     Indication: BRAIN NEOPLASM MALIGNANT
     Dosage: 794 mg, cyclic 1 in 2 wk
     Route: 042
     Dates: start: 20111020
  3. DELIX [Concomitant]
  4. PANTOZOL [Concomitant]
  5. IMBUN [Concomitant]
  6. DOMPERIDONE [Concomitant]
     Dosage: 10 mg, UNK
     Dates: start: 20111006
  7. RAMIPRIL [Concomitant]
     Dosage: UNK
     Dates: start: 20111107
  8. CO-DIOVAN [Concomitant]
     Dosage: UNK
     Dates: start: 20111014
  9. BISOPROLOL [Concomitant]
     Dosage: 5 mg, 1x/day
     Dates: start: 20111021
  10. FUROSEMIDE [Concomitant]
     Dosage: 10 mg, UNK
     Dates: start: 20111022
  11. NOVAMINOSULFON [Concomitant]
  12. MOVICOL [Concomitant]
  13. ZOFRAN [Concomitant]
     Dosage: UNK
     Dates: start: 20111208
  14. RADEDORM [Concomitant]
     Dosage: UNK
     Dates: start: 20111208
  15. VOMEX [Concomitant]
     Dosage: UNK
     Dates: start: 20111222
  16. KEVATRIL [Concomitant]
     Dosage: 2 mg, UNK
     Dates: start: 20111201
  17. LAXOBERAL [Concomitant]
     Dosage: 7.5 mg, UNK
     Dates: start: 201202

REACTIONS (2)
  - Epilepsy [Recovered/Resolved]
  - Epilepsy [Recovered/Resolved]
